FAERS Safety Report 13731210 (Version 1)
Quarter: 2017Q3

REPORT INFORMATION
  Report Type: Report from Study
  Country: IT (occurrence: IT)
  Receive Date: 20170707
  Receipt Date: 20170707
  Transmission Date: 20171127
  Serious: Yes (Hospitalization)
  Sender: FDA-Public Use
  Company Number: IT-TEVA-783629ROM

PATIENT
  Age: 63 Year
  Sex: Female

DRUGS (2)
  1. KETOPROFEN. [Suspect]
     Active Substance: KETOPROFEN
     Indication: PAIN
     Route: 048
  2. KETOROLAC [Interacting]
     Active Substance: KETOROLAC\KETOROLAC TROMETHAMINE
     Indication: PAIN
     Route: 048

REACTIONS (4)
  - Off label use [Recovering/Resolving]
  - Drug interaction [Recovering/Resolving]
  - Gastritis erosive [Recovering/Resolving]
  - Incorrect drug administration duration [Recovering/Resolving]
